FAERS Safety Report 16223076 (Version 1)
Quarter: 2019Q2

REPORT INFORMATION
  Report Type: Spontaneous
  Country: US (occurrence: US)
  Receive Date: 20190320
  Receipt Date: 20190320
  Transmission Date: 20190711
  Serious: Yes (Hospitalization)
  Sender: FDA-Public Use
  Company Number: None

PATIENT
  Age: 66 Year
  Sex: Female

DRUGS (1)
  1. MAVYRET [Suspect]
     Active Substance: GLECAPREVIR\PIBRENTASVIR
     Indication: HEPATITIS C
     Route: 048
     Dates: start: 20190222

REACTIONS (5)
  - Therapy cessation [None]
  - Fall [None]
  - Head injury [None]
  - Device malfunction [None]
  - Blood potassium decreased [None]

NARRATIVE: CASE EVENT DATE: 20190320
